FAERS Safety Report 9659502 (Version 1)
Quarter: 2013Q4

REPORT INFORMATION
  Report Type: Spontaneous
  Country: IT (occurrence: IT)
  Receive Date: 20131031
  Receipt Date: 20131031
  Transmission Date: 20140711
  Serious: Yes (Other)
  Sender: FDA-Public Use
  Company Number: IT-JNJFOC-20131014065

PATIENT
  Sex: 0

DRUGS (2)
  1. DOXORUBICIN [Suspect]
     Indication: SARCOMATOSIS
     Dosage: 15 MG/L
     Route: 033
  2. CISPLATIN [Suspect]
     Indication: SARCOMATOSIS
     Dosage: 45 MG/L
     Route: 033

REACTIONS (4)
  - Adverse drug reaction [Unknown]
  - Disease progression [Unknown]
  - Off label use [Unknown]
  - Incorrect route of drug administration [Unknown]
